FAERS Safety Report 20979209 (Version 2)
Quarter: 2022Q2

REPORT INFORMATION
  Report Type: Spontaneous
  Country: US (occurrence: US)
  Receive Date: 20220620
  Receipt Date: 20220620
  Transmission Date: 20220721
  Serious: Yes (Other)
  Sender: FDA-Public Use
  Company Number: US-JNJFOC-20220624411

PATIENT
  Age: 1 Decade

DRUGS (1)
  1. AVEENO BABY CONTINUOUS PROTECTION SENSITIVE SKIN SUNSCREEN BROAD SPECT [Suspect]
     Active Substance: ZINC OXIDE
     Indication: Product used for unknown indication
     Route: 061

REACTIONS (2)
  - Erythema multiforme [Unknown]
  - Product quality issue [Unknown]
